FAERS Safety Report 16827287 (Version 1)
Quarter: 2019Q3

REPORT INFORMATION
  Report Type: Spontaneous
  Country: IL (occurrence: IL)
  Receive Date: 20190919
  Receipt Date: 20190919
  Transmission Date: 20191005
  Serious: Yes (Hospitalization)
  Sender: FDA-Public Use
  Company Number: IL-TEVA-2019-IL-1111989

PATIENT
  Sex: Female

DRUGS (7)
  1. 5-FLUOROURACIL [Suspect]
     Active Substance: FLUOROURACIL
     Indication: COLORECTAL CANCER METASTATIC
     Dosage: 619 MG, Q2WEEKS
     Route: 040
     Dates: start: 20190303, end: 20190610
  2. IRINOTECAN [Suspect]
     Active Substance: IRINOTECAN
     Indication: COLORECTAL CANCER METASTATIC
     Dosage: 279 MG, Q2WEEKS
     Route: 042
     Dates: start: 20190303, end: 20190610
  3. LEUCOVORIN. [Suspect]
     Active Substance: LEUCOVORIN
     Indication: COLORECTAL CANCER METASTATIC
     Dosage: 619 MG, Q2WEEKS
     Route: 042
     Dates: start: 20190303, end: 20190610
  4. BEVACIZUMAB. [Suspect]
     Active Substance: BEVACIZUMAB
     Dosage: 238 MG, SINGLE
     Route: 042
     Dates: start: 20190610, end: 20190610
  5. BBI608 [Suspect]
     Active Substance: NAPABUCASIN
     Indication: COLORECTAL CANCER METASTATIC
     Dosage: 240 MG, BID
     Route: 048
     Dates: start: 20190227, end: 20190620
  6. BEVACIZUMAB. [Suspect]
     Active Substance: BEVACIZUMAB
     Indication: COLORECTAL CANCER METASTATIC
     Dosage: 266 MG, Q2WEEKS
     Route: 042
     Dates: start: 20190324, end: 20190527
  7. 5-FLUOROURACIL [Suspect]
     Active Substance: FLUOROURACIL
     Dosage: 3715 MG, Q2WEEKS
     Route: 042
     Dates: start: 20190303, end: 20190610

REACTIONS (1)
  - Herpes zoster [Recovering/Resolving]

NARRATIVE: CASE EVENT DATE: 20190620
